FAERS Safety Report 4441195-3 (Version None)
Quarter: 2004Q3

REPORT INFORMATION
  Report Type: 
  Country: None (occurrence: None)
  Receive Date: 20040728
  Receipt Date: 20040402
  Transmission Date: 20050211
  Serious: No
  Sender: FDA-Public Use
  Company Number: USA040463998

PATIENT
  Sex: Female

DRUGS (5)
  1. STRATTERA [Suspect]
     Dosage: 60 MG DAY
     Dates: start: 20040201
  2. PROZAC [Suspect]
  3. ATENOLOL [Concomitant]
  4. TOPAMAX [Concomitant]
  5. ZOVIA 1/35E-21 [Concomitant]

REACTIONS (2)
  - DIARRHOEA [None]
  - MIGRAINE [None]
